FAERS Safety Report 8889010 (Version 1)
Quarter: 2012Q4

REPORT INFORMATION
  Report Type: 
  Country: BE (occurrence: BE)
  Receive Date: 20121106
  Receipt Date: 20121106
  Transmission Date: 20130627
  Serious: Yes (Death)
  Sender: FDA-Public Use
  Company Number: BE-BRISTOL-MYERS SQUIBB COMPANY-17095746

PATIENT
  Age: 87 Year
  Sex: Female

DRUGS (10)
  1. GLUCOPHAGE [Suspect]
     Dosage: 850 mg 3/day
  2. ACCURETIC [Suspect]
  3. BURINEX [Suspect]
  4. VENLAFAXINE HYDROCHLORIDE [Concomitant]
     Indication: DEPRESSION
  5. REDOMEX [Concomitant]
  6. AMLOR [Concomitant]
  7. STAURODORM NEU [Concomitant]
  8. EMCONCOR [Concomitant]
  9. ASAFLOW [Concomitant]
  10. CRESTOR [Concomitant]

REACTIONS (3)
  - Renal failure acute [Fatal]
  - Coma [Fatal]
  - Lactic acidosis [Fatal]
